FAERS Safety Report 7743592-7 (Version None)
Quarter: 2011Q3

REPORT INFORMATION
  Report Type: 
  Country: None (occurrence: None)
  Receive Date: 20110912
  Receipt Date: 20110829
  Transmission Date: 20111222
  Serious: No
  Sender: FDA-Public Use
  Company Number: US-B.I. PHARMACEUTICALS,INC./RIDGEFIELD-2011-BP-20962BP

PATIENT
  Age: 63 Year
  Sex: Female

DRUGS (1)
  1. PRADAXA [Suspect]
     Dosage: 300 MG
     Route: 048

REACTIONS (4)
  - OEDEMA PERIPHERAL [None]
  - DYSPNOEA [None]
  - ACNE [None]
  - HEAD DISCOMFORT [None]
